FAERS Safety Report 6795361-2 (Version None)
Quarter: 2010Q2

REPORT INFORMATION
  Report Type: 
  Country: None (occurrence: None)
  Receive Date: 20100625
  Receipt Date: 20100621
  Transmission Date: 20101027
  Serious: Yes (Life-Threatening, Hospitalization, Other)
  Sender: FDA-Public Use
  Company Number: CA-ASTRAZENECA-2010SE29261

PATIENT
  Age: 22 Year
  Sex: Male

DRUGS (9)
  1. SEROQUEL [Suspect]
     Route: 048
  2. RISPERDAL [Suspect]
     Route: 065
  3. TYLENOL [Suspect]
     Route: 048
  4. CLOZARIL [Suspect]
     Route: 048
  5. ZYPREXA [Suspect]
     Route: 048
  6. ZYPREXA [Suspect]
     Route: 048
  7. ZYPREXA [Suspect]
     Route: 048
  8. ZYPREXA [Suspect]
     Route: 048
  9. LOXAPINE [Concomitant]

REACTIONS (15)
  - ABNORMAL BEHAVIOUR [None]
  - AGGRESSION [None]
  - CATATONIA [None]
  - COMA [None]
  - DELUSION [None]
  - DEPRESSION [None]
  - FEELING ABNORMAL [None]
  - HALLUCINATION [None]
  - HEPATIC FAILURE [None]
  - INCOHERENT [None]
  - INTENTIONAL OVERDOSE [None]
  - MENTAL IMPAIRMENT [None]
  - MUSCLE RIGIDITY [None]
  - PSYCHOTIC DISORDER [None]
  - RENAL FAILURE [None]
